FAERS Safety Report 16876114 (Version 1)
Quarter: 2019Q4

REPORT INFORMATION
  Report Type: Spontaneous
  Country: US (occurrence: US)
  Receive Date: 20190807
  Receipt Date: 20190807
  Transmission Date: 20200122
  Serious: Yes (Other)
  Sender: FDA-Public Use
  Company Number: None

PATIENT
  Age: 84 Year
  Sex: Female

DRUGS (9)
  1. TRESIBA [Suspect]
     Active Substance: INSULIN DEGLUDEC
     Indication: DIABETES MELLITUS
     Dosage: 3 ML SLIDING SCALE 3 TIMES PER DAY INJECTION?
     Dates: start: 20150101
  2. TREMEDOL [Concomitant]
  3. ASPIRING 81MG [Concomitant]
  4. GLIPIZIDE. [Concomitant]
     Active Substance: GLIPIZIDE
  5. NOVOLOG [Suspect]
     Active Substance: INSULIN ASPART
  6. RANOLAZIME ER [Concomitant]
  7. METOPROLOL. [Concomitant]
     Active Substance: METOPROLOL
  8. LATONVORUST OPHTHALMIC [Concomitant]
  9. ROSUVASTATIN. [Concomitant]
     Active Substance: ROSUVASTATIN

REACTIONS (1)
  - Alopecia [None]

NARRATIVE: CASE EVENT DATE: 20150215
